FAERS Safety Report 4583803-2 (Version None)
Quarter: 2005Q1

REPORT INFORMATION
  Report Type: 
  Country: None (occurrence: None)
  Receive Date: 20050211
  Receipt Date: 20050131
  Transmission Date: 20050727
  Serious: Yes (Other)
  Sender: FDA-Public Use
  Company Number: USA-2004-0017369

PATIENT
  Age: 15 Year
  Sex: Male

DRUGS (3)
  1. OXYCONTIN [Suspect]
  2. XANAX [Suspect]
  3. ALCOHOL (ETHANOL) [Suspect]

REACTIONS (5)
  - ALCOHOL USE [None]
  - MURDER [None]
  - PANIC REACTION [None]
  - SELF-MEDICATION [None]
  - SUICIDE ATTEMPT [None]
